FAERS Safety Report 9128751 (Version 1)
Quarter: 2013Q1

REPORT INFORMATION
  Report Type: Spontaneous
  Country: US (occurrence: US)
  Receive Date: 20130125
  Receipt Date: 20130125
  Transmission Date: 20140127
  Serious: Yes (Death)
  Sender: FDA-Public Use
  Company Number: PHHY2013US007055

PATIENT
  Age: 47 Year
  Sex: Female

DRUGS (2)
  1. CARBAMAZEPINE [Suspect]
  2. VALPROIC ACID [Suspect]

REACTIONS (2)
  - Completed suicide [Fatal]
  - Drug level increased [Unknown]
